FAERS Safety Report 12748957 (Version 1)
Quarter: 2016Q3

REPORT INFORMATION
  Report Type: Spontaneous
  Country: US (occurrence: US)
  Receive Date: 20160915
  Receipt Date: 20160915
  Transmission Date: 20161109
  Serious: No
  Sender: FDA-Public Use
  Company Number: US-ASTELLAS-2016US010450

PATIENT
  Sex: Male

DRUGS (1)
  1. XTANDI [Suspect]
     Active Substance: ENZALUTAMIDE
     Indication: PROSTATE CANCER
     Route: 048
     Dates: start: 20160218

REACTIONS (4)
  - Paraesthesia [Unknown]
  - Musculoskeletal chest pain [Not Recovered/Not Resolved]
  - Blood glucose increased [Recovering/Resolving]
  - Nausea [Recovering/Resolving]
